FAERS Safety Report 5879781-6 (Version None)
Quarter: 2008Q3

REPORT INFORMATION
  Report Type: 
  Country: None (occurrence: None)
  Receive Date: 20080912
  Receipt Date: 20080903
  Transmission Date: 20090109
  Serious: Yes (Hospitalization)
  Sender: FDA-Public Use
  Company Number: GB-ROCHE-584616

PATIENT
  Sex: Male
  Weight: 183.9 kg

DRUGS (1)
  1. ORLISTAT [Suspect]
     Indication: OBESITY
     Route: 048
     Dates: start: 20080402, end: 20080817

REACTIONS (4)
  - BLINDNESS UNILATERAL [None]
  - CATARACT OPERATION [None]
  - EYE DISORDER [None]
  - VISUAL ACUITY REDUCED [None]
